FAERS Safety Report 6212056-4 (Version None)
Quarter: 2009Q2

REPORT INFORMATION
  Report Type: 
  Country: None (occurrence: None)
  Receive Date: 20090602
  Receipt Date: 20090522
  Transmission Date: 20091009
  Serious: Yes (Hospitalization, Other)
  Sender: FDA-Public Use
  Company Number: AU-PFIZER INC-2009200772

PATIENT
  Age: 60 Year

DRUGS (12)
  1. LYRICA [Suspect]
     Indication: TRIGEMINAL NEURALGIA
     Dosage: 75 MG, 1X/DAY
     Route: 048
     Dates: end: 20090414
  2. LYRICA [Suspect]
     Indication: PAIN
     Dosage: 75 MG, 3X/DAY
  3. LYRICA [Suspect]
     Dosage: 150 MG, 2X/DAY
  4. TEGRETOL [Concomitant]
     Indication: BACK PAIN
     Dosage: 200 MG, 2X/DAY
  5. LEVOTHYROXINE SODIUM [Concomitant]
  6. ACETAMINOPHEN W/ CODEINE [Concomitant]
  7. OXYNORM [Concomitant]
  8. KARVEA [Concomitant]
     Indication: HYPERTENSION
     Dosage: ONE IN THE MORNING
  9. ACTONEL [Concomitant]
     Indication: OSTEOPOROSIS
     Dosage: ONE IN THE MORNING
     Route: 048
  10. BRICANYL [Concomitant]
     Indication: CHRONIC OBSTRUCTIVE PULMONARY DISEASE
     Dosage: TWO PUFFS, FOUR TIMES DAILY
  11. FRUSEMIDE [Concomitant]
     Indication: FLUID RETENTION
     Dosage: ONE IN THE MORNING
  12. SYMBICORT [Concomitant]
     Indication: CHRONIC OBSTRUCTIVE PULMONARY DISEASE
     Dosage: TWO PUFFS, TWICE DAILY

REACTIONS (10)
  - DIPLOPIA [None]
  - DIZZINESS [None]
  - EATING DISORDER [None]
  - HEADACHE [None]
  - HYPERTENSION [None]
  - KIDNEY INFECTION [None]
  - MUSCULOSKELETAL DISORDER [None]
  - NAUSEA [None]
  - TREMOR [None]
  - URINARY TRACT INFECTION [None]
